FAERS Safety Report 7978179-4 (Version None)
Quarter: 2011Q4

REPORT INFORMATION
  Report Type: 
  Country: None (occurrence: None)
  Receive Date: 20111207
  Receipt Date: 20111129
  Transmission Date: 20120403
  Serious: Yes (Hospitalization)
  Sender: FDA-Public Use
  Company Number: 2011SP056251

PATIENT
  Age: 25 Year
  Sex: Female

DRUGS (1)
  1. DESOGESTREL AND ETHINYL ESTRADIOL [Suspect]
     Indication: ENDOMETRIOSIS
     Dates: start: 20050101

REACTIONS (2)
  - DISEASE PROGRESSION [None]
  - ENDOMETRIOSIS [None]
